FAERS Safety Report 15667895 (Version 1)
Quarter: 2018Q4

REPORT INFORMATION
  Report Type: Report from Study
  Country: None (occurrence: US)
  Receive Date: 20181128
  Receipt Date: 20181128
  Transmission Date: 20190205
  Serious: Yes (Other)
  Sender: FDA-Public Use
  Company Number: US-ABBVIE-18K-163-2569132-00

PATIENT
  Age: 18 Year
  Sex: Female

DRUGS (1)
  1. HUMIRA [Suspect]
     Active Substance: ADALIMUMAB
     Indication: PRODUCT USED FOR UNKNOWN INDICATION
     Dosage: DAY 1
     Route: 058
     Dates: start: 20181113, end: 20181113

REACTIONS (7)
  - Post procedural discharge [Not Recovered/Not Resolved]
  - Injection site papule [Recovered/Resolved]
  - Injection site discolouration [Recovered/Resolved]
  - Condition aggravated [Not Recovered/Not Resolved]
  - Surgery [Not Recovered/Not Resolved]
  - Injection site rash [Recovered/Resolved]
  - Incorrect dose administered [Unknown]

NARRATIVE: CASE EVENT DATE: 201811
